FAERS Safety Report 4485486-9 (Version None)
Quarter: 2004Q4

REPORT INFORMATION
  Report Type: 
  Country: None (occurrence: None)
  Receive Date: 20041022
  Receipt Date: 20041006
  Transmission Date: 20050328
  Serious: Yes (Death)
  Sender: FDA-Public Use
  Company Number: 2004AL000825

PATIENT
  Age: 59 Year
  Sex: 0

DRUGS (2)
  1. LORAZEPAM [Suspect]
     Dosage: PO
     Route: 048
  2. MORPHINE SULFATE [Suspect]
     Dosage: PO
     Route: 048

REACTIONS (2)
  - COMPLETED SUICIDE [None]
  - MULTIPLE DRUG OVERDOSE INTENTIONAL [None]
